FAERS Safety Report 6376866-5 (Version None)
Quarter: 2009Q3

REPORT INFORMATION
  Report Type: 
  Country: None (occurrence: None)
  Receive Date: 20090925
  Receipt Date: 20090914
  Transmission Date: 20100115
  Serious: Yes (Other)
  Sender: FDA-Public Use
  Company Number: US-CELGENEUS-163-21880-09042417

PATIENT

DRUGS (4)
  1. REVLIMID [Suspect]
     Indication: MYELOFIBROSIS
     Route: 048
  2. PREDNISONE TAB [Suspect]
     Indication: MYELOFIBROSIS
     Route: 048
  3. PREDNISONE TAB [Suspect]
     Route: 048
  4. PREDNISONE TAB [Suspect]
     Route: 048

REACTIONS (13)
  - ANAEMIA [None]
  - BLOOD BILIRUBIN INCREASED [None]
  - DIARRHOEA [None]
  - DYSPNOEA [None]
  - FATIGUE [None]
  - INFECTION [None]
  - NAUSEA [None]
  - NEUTROPENIA [None]
  - NO THERAPEUTIC RESPONSE [None]
  - OEDEMA [None]
  - RASH [None]
  - THROMBOCYTOPENIA [None]
  - THROMBOCYTOSIS [None]
